FAERS Safety Report 23193233 (Version 1)
Quarter: 2023Q4

REPORT INFORMATION
  Report Type: Spontaneous
  Country: FR (occurrence: FR)
  Receive Date: 20231116
  Receipt Date: 20231116
  Transmission Date: 20240110
  Serious: Yes (Death, Hospitalization, Other)
  Sender: FDA-Public Use
  Company Number: None

PATIENT
  Age: 51 Year
  Sex: Male

DRUGS (5)
  1. CLOZAPINE [Suspect]
     Active Substance: CLOZAPINE
     Indication: Delirium
     Dosage: THE EVENING
     Route: 065
     Dates: start: 20220407, end: 20220416
  2. LOXAPINE [Suspect]
     Active Substance: LOXAPINE
     Indication: Delirium
     Dosage: 175 MILLIGRAM DAILY; 75 MG IN THE MORNING AND 100 MG IN THE EVENING
     Route: 065
     Dates: end: 20220417
  3. DIAZEPAM [Concomitant]
     Active Substance: DIAZEPAM
     Indication: Delirium
     Dosage: 30 MILLIGRAM DAILY; 10 MG MORNING NOON AND EVENING
     Dates: end: 20220417
  4. HALDOL [Concomitant]
     Active Substance: HALOPERIDOL
     Indication: Delirium
     Dosage: THE MORNING
     Dates: end: 20220417
  5. TROPATEPINE HYDROCHLORIDE [Concomitant]
     Active Substance: TROPATEPINE HYDROCHLORIDE
     Indication: Delirium
     Dosage: THE MORNING
     Dates: end: 20220417

REACTIONS (5)
  - Cardio-respiratory arrest [Fatal]
  - Sedation [Fatal]
  - Dysphagia [Fatal]
  - Tachycardia [Unknown]
  - Pyrexia [Recovered/Resolved]

NARRATIVE: CASE EVENT DATE: 20220417
